FAERS Safety Report 9452650 (Version 1)
Quarter: 2013Q3

REPORT INFORMATION
  Report Type: Spontaneous
  Country: US (occurrence: None)
  Receive Date: 20130808
  Receipt Date: 20130808
  Transmission Date: 20140515
  Serious: Yes (Hospitalization)
  Sender: FDA-Public Use
  Company Number: None

PATIENT
  Age: 40 Year
  Sex: Male
  Weight: 128 kg

DRUGS (2)
  1. CYTARABINE [Suspect]
  2. IDARUBICIN [Suspect]

REACTIONS (1)
  - Blood creatinine increased [None]
